FAERS Safety Report 5268502-6 (Version None)
Quarter: 2007Q1

REPORT INFORMATION
  Report Type: 
  Country: None (occurrence: None)
  Receive Date: 20070313
  Receipt Date: 20070228
  Transmission Date: 20070707
  Serious: Yes (Other)
  Sender: FDA-Public Use
  Company Number: 2006BI018389

PATIENT
  Sex: Female

DRUGS (1)
  1. AVONEX [Suspect]
     Indication: DRUG USE FOR UNKNOWN INDICATION
     Dosage: 30 UG; IM
     Route: 030
     Dates: start: 20010101

REACTIONS (6)
  - CONTUSION [None]
  - DEPRESSION [None]
  - HYSTERECTOMY [None]
  - IRRITABILITY [None]
  - MOOD SWINGS [None]
  - RENAL DISORDER [None]
